FAERS Safety Report 5265607-0 (Version None)
Quarter: 2007Q1

REPORT INFORMATION
  Report Type: 
  Country: None (occurrence: None)
  Receive Date: 20061213
  Receipt Date: 20030617
  Transmission Date: 20070707
  Serious: Yes (Other)
  Sender: FDA-Public Use
  Company Number: 2003UW07707

PATIENT
  Age: 80 Year
  Sex: Female
  Weight: 40.8237 kg

DRUGS (1)
  1. IRESSA [Suspect]
     Indication: NON-SMALL CELL LUNG CANCER
     Dates: start: 20030501

REACTIONS (2)
  - EYELID DISORDER [None]
  - THROAT IRRITATION [None]
